FAERS Safety Report 10205941 (Version 1)
Quarter: 2014Q2

REPORT INFORMATION
  Report Type: Spontaneous
  Country: US (occurrence: US)
  Receive Date: 20140530
  Receipt Date: 20140530
  Transmission Date: 20141212
  Serious: Yes (Hospitalization)
  Sender: FDA-Public Use
  Company Number: US-BRISTOL-MYERS SQUIBB COMPANY-20814273

PATIENT
  Age: 66 Year
  Sex: Female
  Weight: 86.17 kg

DRUGS (1)
  1. ABATACEPT SUBQ INJECTION 125MG/ML [Suspect]
     Indication: RHEUMATOID ARTHRITIS
     Dosage: 1 DF : 125MG/ML
     Route: 058

REACTIONS (4)
  - Intervertebral disc disorder [Recovering/Resolving]
  - Product quality issue [Unknown]
  - Injection site extravasation [Unknown]
  - Underdose [Unknown]
